FAERS Safety Report 4813919-4 (Version None)
Quarter: 2005Q4

REPORT INFORMATION
  Report Type: 
  Country: None (occurrence: None)
  Receive Date: 20051028
  Receipt Date: 20040901
  Transmission Date: 20060501
  Serious: No
  Sender: FDA-Public Use
  Company Number: US-GLAXOSMITHKLINE-A0524219A

PATIENT

DRUGS (2)
  1. SEREVENT [Suspect]
     Indication: EMPHYSEMA
     Dosage: 50MCG UNKNOWN
     Route: 055
  2. ADVAIR DISKUS 100/50 [Concomitant]
     Indication: EMPHYSEMA
     Route: 055

REACTIONS (1)
  - MOUTH ULCERATION [None]
